FAERS Safety Report 9363877 (Version 1)
Quarter: 2013Q2

REPORT INFORMATION
  Report Type: Spontaneous
  Country: IT (occurrence: None)
  Receive Date: 20130618
  Receipt Date: 20130618
  Transmission Date: 20140414
  Serious: Yes (Hospitalization)
  Sender: FDA-Public Use
  Company Number: DSM-2013-00567

PATIENT
  Age: 75 Year
  Sex: Male

DRUGS (1)
  1. OLMESARTAN (OLMESARTAN) (TABLET) (OLMESARTAN) [Suspect]
     Indication: PRODUCT USED FOR UNKNOWN INDICATION
     Dosage: 40 MG (40 MG, 1 IN 1 D), ORAL
     Route: 048
     Dates: start: 2009, end: 201211

REACTIONS (9)
  - Malabsorption [None]
  - Haemoglobin decreased [None]
  - Blood potassium decreased [None]
  - Blood calcium decreased [None]
  - Blood magnesium decreased [None]
  - Hypoalbuminaemia [None]
  - Vitamin D deficiency [None]
  - Intestinal villi atrophy [None]
  - Gastrointestinal inflammation [None]
